FAERS Safety Report 6247680-6 (Version None)
Quarter: 2009Q2

REPORT INFORMATION
  Report Type: 
  Country: None (occurrence: None)
  Receive Date: 20090626
  Receipt Date: 20090616
  Transmission Date: 20091009
  Serious: Yes (Other)
  Sender: FDA-Public Use
  Company Number: NL-ELI_LILLY_AND_COMPANY-NL200906003848

PATIENT
  Sex: Male
  Weight: 82 kg

DRUGS (4)
  1. STRATTERA [Suspect]
     Indication: ATTENTION DEFICIT/HYPERACTIVITY DISORDER
     Dosage: UNK, UNKNOWN
     Route: 065
  2. STRATTERA [Suspect]
     Dosage: 80 MG, UNK
     Dates: start: 20090108, end: 20090218
  3. CIPRAMIL [Concomitant]
     Dosage: 40 MG, UNK
     Dates: start: 20081101
  4. MELATONIN [Concomitant]
     Dosage: 0.5 MG, UNK
     Dates: start: 20081127

REACTIONS (5)
  - DIZZINESS [None]
  - HEADACHE [None]
  - PANIC ATTACK [None]
  - SUICIDAL IDEATION [None]
  - SUICIDE ATTEMPT [None]
